FAERS Safety Report 5890496-0 (Version None)
Quarter: 2008Q3

REPORT INFORMATION
  Report Type: 
  Country: None (occurrence: None)
  Receive Date: 20080918
  Receipt Date: 20080902
  Transmission Date: 20090109
  Serious: Yes (Life-Threatening, Hospitalization)
  Sender: FDA-Public Use
  Company Number: DSJ-2008-09942

PATIENT
  Age: 71 Year
  Sex: Male
  Weight: 71 kg

DRUGS (3)
  1. OLMETEC (OLMESARTAN MEDOXOMIL) (TABLET) (OLMESARTAN [Suspect]
     Indication: ESSENTIAL HYPERTENSION
     Dosage: 20 MG (20 MG, 1 IN 1 D) ,PER ORAL
     Route: 048
     Dates: start: 20060404
  2. NORVASC [Suspect]
     Dosage: 2.5 MG (2.5 MG, 1 IN 1 D) ,PER ORAL
     Route: 048
  3. PRODEC (ALLOPURINOL) (ALLOPURINOL) [Suspect]
     Dosage: 100 MG (100 MG, 1 IN 1 D) ,PER ORAL
     Route: 048

REACTIONS (1)
  - SARCOMA [None]
